FAERS Safety Report 16932936 (Version 2)
Quarter: 2019Q4

REPORT INFORMATION
  Report Type: Spontaneous
  Country: SE (occurrence: SE)
  Receive Date: 20191018
  Receipt Date: 20191128
  Transmission Date: 20200122
  Serious: Yes (Other)
  Sender: FDA-Public Use
  Company Number: SE-CELLTRION INC.-2019SE025772

PATIENT

DRUGS (2)
  1. RITEMVIA [Suspect]
     Active Substance: RITUXIMAB
     Indication: RHEUMATOID ARTHRITIS
     Dosage: 1000 MG, AS A SINGLE DOSE
     Route: 065
     Dates: start: 20190305, end: 20190305
  2. RITEMVIA [Suspect]
     Active Substance: RITUXIMAB
     Dosage: 1000 MG, AS A SINGLE DOSE
     Route: 065
     Dates: start: 20190813, end: 20190813

REACTIONS (8)
  - Pyrexia [Not Recovered/Not Resolved]
  - Balance disorder [Not Recovered/Not Resolved]
  - Facial paralysis [Not Recovered/Not Resolved]
  - Sensory loss [Not Recovered/Not Resolved]
  - Progressive multifocal leukoencephalopathy [Not Recovered/Not Resolved]
  - Fatigue [Not Recovered/Not Resolved]
  - Hypoaesthesia [Not Recovered/Not Resolved]
  - Ageusia [Not Recovered/Not Resolved]

NARRATIVE: CASE EVENT DATE: 2019
